FAERS Safety Report 6122105-X (Version None)
Quarter: 2009Q1

REPORT INFORMATION
  Report Type: 
  Country: None (occurrence: None)
  Receive Date: 20090316
  Receipt Date: 20090316
  Transmission Date: 20090719
  Serious: Yes (Other)
  Sender: FDA-Public Use
  Company Number: None

PATIENT
  Sex: Female
  Weight: 106.5953 kg

DRUGS (2)
  1. CHANTIX [Suspect]
     Indication: SMOKING CESSATION THERAPY
     Dosage: 1 1 TIME A DAY PO
     Route: 048
     Dates: start: 20090306, end: 20090308
  2. CHANTIX [Suspect]
     Dosage: 1 2 TIMES A DAY PO
     Route: 048
     Dates: start: 20090309, end: 20090312

REACTIONS (5)
  - DIZZINESS [None]
  - FEELING JITTERY [None]
  - NAUSEA [None]
  - RESTLESSNESS [None]
  - VOMITING [None]
